FAERS Safety Report 10085620 (Version 2)
Quarter: 2014Q3

REPORT INFORMATION
  Report Type: Spontaneous
  Country: DE (occurrence: DE)
  Receive Date: 20140418
  Receipt Date: 20140905
  Transmission Date: 20150326
  Serious: Yes (Hospitalization)
  Sender: FDA-Public Use
  Company Number: DE-AMGEN-DEUSP2014027845

PATIENT
  Sex: Female

DRUGS (2)
  1. NEULASTA [Suspect]
     Active Substance: PEGFILGRASTIM
     Indication: PRODUCT USED FOR UNKNOWN INDICATION
     Dosage: 6 MG, UNK
     Route: 065
  2. EPIRUBICIN [Concomitant]
     Active Substance: EPIRUBICIN
     Dosage: UNK

REACTIONS (2)
  - White blood cell count decreased [Unknown]
  - Febrile neutropenia [Unknown]
